FAERS Safety Report 21400351 (Version 1)
Quarter: 2022Q4

REPORT INFORMATION
  Report Type: Spontaneous
  Country: AE (occurrence: AE)
  Receive Date: 20221002
  Receipt Date: 20221002
  Transmission Date: 20230112
  Serious: Yes (Hospitalization, Other)
  Sender: FDA-Public Use
  Company Number: None

PATIENT
  Age: 30 Year
  Sex: Female

DRUGS (1)
  1. DAPSONE [Suspect]
     Active Substance: DAPSONE
     Indication: Linear IgA disease
     Route: 048

REACTIONS (4)
  - Intentional overdose [Unknown]
  - Haemolysis [Recovered/Resolved]
  - Drug-induced liver injury [Recovering/Resolving]
  - Methaemoglobinaemia [Recovered/Resolved]
